FAERS Safety Report 18204991 (Version 1)
Quarter: 2020Q3

REPORT INFORMATION
  Report Type: Other
  Country: DE (occurrence: DE)
  Receive Date: 20200828
  Receipt Date: 20200828
  Transmission Date: 20201103
  Serious: Yes (Hospitalization)
  Sender: FDA-Public Use
  Company Number: DE-ROCHE-2665031

PATIENT
  Age: 46 Year
  Sex: Female
  Weight: 47 kg

DRUGS (22)
  1. DREISAVIT N [Concomitant]
     Indication: HYPOVITAMINOSIS
     Route: 048
  2. OCRELIZUMAB. [Suspect]
     Active Substance: OCRELIZUMAB
     Route: 042
     Dates: start: 20190327
  3. ASPIRIN. [Concomitant]
     Active Substance: ASPIRIN
     Route: 048
     Dates: end: 201912
  4. L?THYROX [Concomitant]
     Active Substance: LEVOTHYROXINE SODIUM
     Route: 048
     Dates: start: 201912
  5. TORASEMID [Concomitant]
     Active Substance: TORSEMIDE
     Indication: HYPERTENSION
     Route: 048
  6. AERIUS [Concomitant]
     Indication: PROPHYLAXIS
     Route: 048
     Dates: start: 20181003, end: 20181005
  7. PREDNISOLUT [Concomitant]
     Active Substance: PREDNISOLONE
     Route: 042
     Dates: start: 20181004, end: 20181004
  8. RAMIPRIL. [Concomitant]
     Active Substance: RAMIPRIL
     Indication: HYPERTENSION
     Route: 048
  9. AERIUS [Concomitant]
     Route: 048
     Dates: start: 20190326, end: 20190328
  10. MOVICOL [Concomitant]
     Active Substance: POLYETHYLENE GLYCOL 3350\POTASSIUM CHLORIDE\SODIUM BICARBONATE\SODIUM CHLORIDE
     Indication: CONSTIPATION
     Dosage: DEFINITION OF THE INTERVAL: AS REQUIRED
     Route: 048
  11. TROSPIUM CHLORIDE. [Concomitant]
     Active Substance: TROSPIUM CHLORIDE
     Route: 048
  12. DEKRISTOL [Concomitant]
     Active Substance: CHOLECALCIFEROL
     Indication: VITAMIN D DEFICIENCY
     Route: 048
  13. RANITIDIN [Concomitant]
     Active Substance: RANITIDINE HYDROCHLORIDE
     Route: 048
     Dates: start: 20181003, end: 20181005
  14. RENVELA [Concomitant]
     Active Substance: SEVELAMER CARBONATE
     Route: 048
  15. PREDNISOLUT [Concomitant]
     Active Substance: PREDNISOLONE
     Route: 042
     Dates: start: 20190327, end: 20190327
  16. RENAGEL [Concomitant]
     Active Substance: SEVELAMER HYDROCHLORIDE
     Route: 048
  17. RANITIDIN [Concomitant]
     Active Substance: RANITIDINE HYDROCHLORIDE
     Indication: PROPHYLAXIS
     Route: 048
     Dates: start: 20180918, end: 20180920
  18. RANITIDIN [Concomitant]
     Active Substance: RANITIDINE HYDROCHLORIDE
     Route: 048
     Dates: start: 20190326, end: 20190328
  19. OCRELIZUMAB. [Suspect]
     Active Substance: OCRELIZUMAB
     Indication: MULTIPLE SCLEROSIS
     Route: 042
     Dates: start: 20180919, end: 20181004
  20. AERIUS [Concomitant]
     Route: 048
     Dates: start: 20180918, end: 20180920
  21. PREDNISOLUT [Concomitant]
     Active Substance: PREDNISOLONE
     Indication: PROPHYLAXIS
     Route: 042
     Dates: start: 20180919, end: 20180919
  22. SIMVASTATIN. [Concomitant]
     Active Substance: SIMVASTATIN
     Route: 048

REACTIONS (1)
  - Normochromic normocytic anaemia [Unknown]

NARRATIVE: CASE EVENT DATE: 20200812
